FAERS Safety Report 7014735-8 (Version None)
Quarter: 2010Q3

REPORT INFORMATION
  Report Type: 
  Country: None (occurrence: None)
  Receive Date: 20100927
  Receipt Date: 20100921
  Transmission Date: 20110219
  Serious: Yes (Death, Other)
  Sender: FDA-Public Use
  Company Number: PHHY2010JP11016

PATIENT
  Sex: Male

DRUGS (1)
  1. DIOVAN [Suspect]
     Indication: HYPERTENSION
     Dosage: 80 MG, QD
     Route: 048
     Dates: start: 20081112

REACTIONS (4)
  - BLOOD PRESSURE DIASTOLIC DECREASED [None]
  - CEREBRAL INFARCTION [None]
  - MARASMUS [None]
  - PNEUMONIA ASPIRATION [None]
